FAERS Safety Report 9863280 (Version 1)
Quarter: 2014Q1

REPORT INFORMATION
  Report Type: Spontaneous
  Country: US (occurrence: US)
  Receive Date: 20140203
  Receipt Date: 20140203
  Transmission Date: 20141002
  Serious: No
  Sender: FDA-Public Use
  Company Number: US-PFIZER INC-2014030249

PATIENT
  Age: 45 Year
  Sex: Female
  Weight: 58.05 kg

DRUGS (2)
  1. LYRICA [Suspect]
     Indication: COMPLEX REGIONAL PAIN SYNDROME
     Dosage: 100 MG, 2X/DAY
     Dates: start: 2007
  2. LYRICA [Suspect]
     Dosage: UNK
     Dates: start: 201401

REACTIONS (2)
  - Off label use [Unknown]
  - Fibromyalgia [Unknown]
